FAERS Safety Report 21975849 (Version 3)
Quarter: 2023Q1

REPORT INFORMATION
  Report Type: Report from Study
  Country: ES (occurrence: ES)
  Receive Date: 20230210
  Receipt Date: 20230302
  Transmission Date: 20230418
  Serious: Yes (Hospitalization, Other)
  Sender: FDA-Public Use
  Company Number: ES-ABBVIE-4301049

PATIENT
  Age: 63 Year
  Sex: Female

DRUGS (3)
  1. CARBIDOPA\LEVODOPA [Suspect]
     Active Substance: CARBIDOPA\LEVODOPA
     Indication: Parkinson^s disease
     Route: 050
     Dates: start: 20200130
  2. CARBIDOPA\LEVODOPA [Suspect]
     Active Substance: CARBIDOPA\LEVODOPA
     Route: 050
  3. XADAGO [Suspect]
     Active Substance: SAFINAMIDE MESYLATE
     Indication: General physical condition abnormal
     Dosage: 50 MILLIGRAM
     Route: 048
     Dates: start: 20230206, end: 20230207

REACTIONS (14)
  - Anaphylactic reaction [Recovering/Resolving]
  - Agitation [Unknown]
  - Pruritus [Unknown]
  - Hypersensitivity [Unknown]
  - Wound [Recovering/Resolving]
  - Burning sensation [Unknown]
  - Gait disturbance [Not Recovered/Not Resolved]
  - Hallucination [Unknown]
  - Joint swelling [Unknown]
  - Swelling face [Unknown]
  - Urticaria [Unknown]
  - Sarcopenia [Unknown]
  - Weight decreased [Unknown]
  - Mobility decreased [Not Recovered/Not Resolved]

NARRATIVE: CASE EVENT DATE: 20230201
